FAERS Safety Report 7113195-6 (Version None)
Quarter: 2010Q4

REPORT INFORMATION
  Report Type: 
  Country: None (occurrence: None)
  Receive Date: 20101119
  Receipt Date: 20091028
  Transmission Date: 20110411
  Serious: No
  Sender: FDA-Public Use
  Company Number: A0813804A

PATIENT
  Age: 53 Year
  Sex: Male

DRUGS (5)
  1. WELLBUTRIN SR [Suspect]
     Indication: DEPRESSION
     Dosage: 300MG PER DAY
     Route: 048
     Dates: start: 20081001
  2. SYNTHROID [Concomitant]
  3. FLOVENT [Concomitant]
  4. MOBIC [Concomitant]
  5. NEXIUM [Concomitant]

REACTIONS (3)
  - READING DISORDER [None]
  - VISION BLURRED [None]
  - VISUAL IMPAIRMENT [None]
